FAERS Safety Report 9688655 (Version 3)
Quarter: 2013Q4

REPORT INFORMATION
  Report Type: Spontaneous
  Country: US (occurrence: None)
  Receive Date: 20131113
  Receipt Date: 20131218
  Transmission Date: 20140711
  Serious: Yes (Hospitalization, Other)
  Sender: FDA-Public Use
  Company Number: ADR-2013-02063

PATIENT
  Age: 18 Year
  Sex: Female

DRUGS (2)
  1. LIORESAL INTRATHECAL [Suspect]
     Indication: MUSCLE SPASTICITY
     Dates: start: 20050509
  2. BACLOFEN [Suspect]

REACTIONS (6)
  - Drug withdrawal syndrome [None]
  - Agitation [None]
  - Restlessness [None]
  - Pruritus [None]
  - Device related infection [None]
  - Infusion site infection [None]
